FAERS Safety Report 10548742 (Version 1)
Quarter: 2014Q4

REPORT INFORMATION
  Report Type: Spontaneous
  Country: US (occurrence: None)
  Receive Date: 20141027
  Receipt Date: 20141027
  Transmission Date: 20150529
  Serious: No
  Sender: FDA-Public Use
  Company Number: None

PATIENT
  Age: 11 Year
  Sex: Male
  Weight: 39.92 kg

DRUGS (5)
  1. VYVANSE [Concomitant]
     Active Substance: LISDEXAMFETAMINE DIMESYLATE
  2. ZYPREXA [Concomitant]
     Active Substance: OLANZAPINE
  3. ATIVAN [Suspect]
     Active Substance: LORAZEPAM
     Dosage: X1 DOSE (1 PIL)
     Route: 048
     Dates: start: 20141015, end: 20141015
  4. WELLBUTRIN [Concomitant]
     Active Substance: BUPROPION HYDROCHLORIDE
  5. INTUNIV [Concomitant]
     Active Substance: GUANFACINE HYDROCHLORIDE

REACTIONS (2)
  - Agitation [None]
  - Irritability [None]

NARRATIVE: CASE EVENT DATE: 20141015
